FAERS Safety Report 21308342 (Version 3)
Quarter: 2022Q4

REPORT INFORMATION
  Report Type: Spontaneous
  Country: US (occurrence: US)
  Receive Date: 20220908
  Receipt Date: 20221028
  Transmission Date: 20230113
  Serious: No
  Sender: FDA-Public Use
  Company Number: US-AMGEN-USASP2022150578

PATIENT
  Age: 77 Year
  Sex: Female

DRUGS (1)
  1. REPATHA [Suspect]
     Active Substance: EVOLOCUMAB
     Indication: Product used for unknown indication
     Dosage: 420 MILLIGRAM/3.5 ML
     Route: 065

REACTIONS (4)
  - Abdominal discomfort [Unknown]
  - Drug dose omission by device [Unknown]
  - Injection site bruising [Unknown]
  - Nausea [Unknown]

NARRATIVE: CASE EVENT DATE: 20220829
